FAERS Safety Report 8906127 (Version 1)
Quarter: 2012Q4

REPORT INFORMATION
  Report Type: Report from Study
  Country: US (occurrence: US)
  Receive Date: 20121110
  Receipt Date: 20121110
  Transmission Date: 20130627
  Serious: Yes (Hospitalization)
  Sender: FDA-Public Use
  Company Number: US-ABBOTT-12P-163-1004490-00

PATIENT
  Age: 70 Year
  Sex: Male
  Weight: 136.2 kg

DRUGS (13)
  1. ANDROGEL [Suspect]
     Indication: BLOOD TESTOSTERONE DECREASED
     Dates: start: 201209, end: 20121101
  2. COUMADIN [Concomitant]
     Indication: ATRIAL FIBRILLATION
     Dates: start: 2007, end: 20121101
  3. COUMADIN [Concomitant]
     Dates: start: 20121104
  4. JANUVIA [Concomitant]
     Indication: DIABETES MELLITUS
  5. GLYBURIDE [Concomitant]
     Indication: DIABETES MELLITUS
  6. NEURONTIN [Concomitant]
     Indication: NEUROPATHY PERIPHERAL
  7. SINGULAIR [Concomitant]
     Indication: CHRONIC OBSTRUCTIVE PULMONARY DISEASE
  8. AMBIEN [Concomitant]
     Indication: INSOMNIA
  9. ATIVAN [Concomitant]
     Indication: SOMNOLENCE
  10. B-12 [Concomitant]
     Indication: ASTHENIA
  11. VITAMIN C [Concomitant]
     Indication: NASOPHARYNGITIS
  12. VITAMIN C [Concomitant]
     Indication: PROPHYLAXIS
  13. LASIX [Concomitant]
     Indication: PRODUCT USED FOR UNKNOWN INDICATION
     Dates: start: 2010

REACTIONS (3)
  - Cardiac failure congestive [Recovered/Resolved]
  - Dyspnoea [Recovered/Resolved]
  - International normalised ratio increased [Not Recovered/Not Resolved]
